FAERS Safety Report 12620609 (Version 2)
Quarter: 2016Q3

REPORT INFORMATION
  Report Type: Spontaneous
  Country: US (occurrence: US)
  Receive Date: 20160804
  Receipt Date: 20160922
  Transmission Date: 20161109
  Serious: Yes (Other)
  Sender: FDA-Public Use
  Company Number: US-ASTRAZENECA-2016SE82830

PATIENT
  Sex: Male

DRUGS (1)
  1. TUDORZA PRESSAIR [Suspect]
     Active Substance: ACLIDINIUM BROMIDE
     Route: 055
     Dates: start: 20160726

REACTIONS (3)
  - Circumstance or information capable of leading to medication error [Unknown]
  - Blindness [Unknown]
  - Device failure [Unknown]

NARRATIVE: CASE EVENT DATE: 20160726
